FAERS Safety Report 7928130-8 (Version None)
Quarter: 2011Q4

REPORT INFORMATION
  Report Type: 
  Country: None (occurrence: None)
  Receive Date: 20111118
  Receipt Date: 20111115
  Transmission Date: 20120403
  Serious: Yes (Congenital Anomaly)
  Sender: FDA-Public Use
  Company Number: FR-EISAI INC-E2090-01510-SPO-FR

PATIENT

DRUGS (2)
  1. ZONEGRAN [Suspect]
     Dosage: 200 MG
     Route: 064
     Dates: end: 20110601
  2. DEPAKENE [Concomitant]
     Dosage: 2 GRAMS
     Route: 064

REACTIONS (6)
  - CONDUCTION DISORDER [None]
  - SUPRAVENTRICULAR EXTRASYSTOLES [None]
  - BRADYCARDIA [None]
  - CYTOGENETIC ABNORMALITY [None]
  - MATERNAL EXPOSURE DURING PREGNANCY [None]
  - PYELOCALIECTASIS [None]
